FAERS Safety Report 8838216 (Version 2)
Quarter: 2012Q4

REPORT INFORMATION
  Report Type: 
  Country: IT (occurrence: IT)
  Receive Date: 20121012
  Receipt Date: 20121121
  Transmission Date: 20130627
  Serious: Yes (Hospitalization)
  Sender: FDA-Public Use
  Company Number: IT-BRISTOL-MYERS SQUIBB COMPANY-17015744

PATIENT
  Age: 84 Year
  Sex: Female

DRUGS (1)
  1. COUMADIN TABS 5 MG [Suspect]
     Indication: ATRIAL FIBRILLATION
     Dosage: Coumadin 38,75 mg/weekly from Oct 1, 2011 to Oct 1, 2012
     Dates: start: 20111001

REACTIONS (2)
  - Traumatic haematoma [Recovered/Resolved]
  - Fall [Unknown]
